FAERS Safety Report 8025385-9 (Version None)
Quarter: 2012Q1

REPORT INFORMATION
  Report Type: 
  Country: None (occurrence: None)
  Receive Date: 20120105
  Receipt Date: 20120104
  Transmission Date: 20120608
  Serious: Yes (Other)
  Sender: FDA-Public Use
  Company Number: US-PFIZER INC-2012002804

PATIENT
  Sex: Female
  Weight: 67.574 kg

DRUGS (5)
  1. LIPITOR [Suspect]
     Dosage: 40 MG, DAILY
     Route: 048
  2. LIPITOR [Suspect]
     Dosage: UNK
     Route: 048
  3. LIPITOR [Suspect]
     Indication: BLOOD CHOLESTEROL INCREASED
     Dosage: 20 MG, 1X/DAY
     Route: 048
  4. NEXIUM [Concomitant]
     Indication: GASTROOESOPHAGEAL REFLUX DISEASE
     Dosage: 40 MG, 1X/DAY
  5. DIOVAN HCT [Concomitant]
     Indication: BLOOD PRESSURE ABNORMAL
     Dosage: 160/25 MG, DAILY

REACTIONS (2)
  - GASTROINTESTINAL DISORDER [None]
  - HYSTERECTOMY [None]
